FAERS Safety Report 19644754 (Version 1)
Quarter: 2021Q3

REPORT INFORMATION
  Report Type: Other
  Country: FR (occurrence: FR)
  Receive Date: 20210802
  Receipt Date: 20210802
  Transmission Date: 20211014
  Serious: Yes (Hospitalization)
  Sender: FDA-Public Use
  Company Number: FR-ROCHE-2879941

PATIENT
  Age: 76 Year
  Sex: Female

DRUGS (1)
  1. PRALSETINIB. [Suspect]
     Active Substance: PRALSETINIB
     Indication: MEDULLARY THYROID CANCER
     Route: 048
     Dates: start: 20210614, end: 20210712

REACTIONS (3)
  - Interstitial lung disease [Recovering/Resolving]
  - General physical health deterioration [Recovering/Resolving]
  - Blood creatine phosphokinase increased [Recovered/Resolved]

NARRATIVE: CASE EVENT DATE: 20210702
